FAERS Safety Report 9773725 (Version 1)
Quarter: 2013Q4

REPORT INFORMATION
  Report Type: Spontaneous
  Country: SK (occurrence: None)
  Receive Date: 20131218
  Receipt Date: 20131218
  Transmission Date: 20140711
  Serious: Yes (Other)
  Sender: FDA-Public Use
  Company Number: 2071726

PATIENT
  Sex: 0

DRUGS (3)
  1. (PACLITAXEL) [Suspect]
     Indication: NON-SMALL CELL LUNG CANCER
     Dosage: UNKNOWN
  2. BEVACIZUMAB [Suspect]
     Indication: NON-SMALL CELL LUNG CANCER
     Dosage: 15 MG/KG MILLIGRAM(S)/KILOGRAM (UNKNOWN)
  3. (CARBOPLATIN) [Suspect]
     Indication: NON-SMALL CELL LUNG CANCER
     Dosage: NOT REPORTED, UNKNOWN

REACTIONS (1)
  - Pneumothorax [None]
